FAERS Safety Report 17493797 (Version 1)
Quarter: 2020Q1

REPORT INFORMATION
  Report Type: Spontaneous
  Country: BR (occurrence: BR)
  Receive Date: 20200304
  Receipt Date: 20200304
  Transmission Date: 20200409
  Serious: Yes (Hospitalization, Other)
  Sender: FDA-Public Use
  Company Number: BR-ACCORD-174694

PATIENT
  Age: 70 Year
  Sex: Female

DRUGS (1)
  1. ACETAZOLAMIDE. [Suspect]
     Active Substance: ACETAZOLAMIDE
     Indication: CATARACT OPERATION
     Dosage: 500 MG 4 TIMES A DAY FOR 5 DAYS, AND THEN THE DOSAGE WAS REDUCED TO 250 MG 4 TIMES A DAY

REACTIONS (9)
  - Acidosis hyperchloraemic [Recovered/Resolved]
  - Renal impairment [Recovered/Resolved]
  - Hypovolaemic shock [Recovered/Resolved]
  - Metabolic encephalopathy [Recovered/Resolved]
  - Toxicity to various agents [Unknown]
  - Coma [Recovered/Resolved]
  - Mental impairment [Recovered/Resolved]
  - Overdose [Unknown]
  - Respiratory failure [Recovered/Resolved]
